FAERS Safety Report 16122079 (Version 1)
Quarter: 2019Q1

REPORT INFORMATION
  Report Type: Spontaneous
  Country: US (occurrence: US)
  Receive Date: 20190327
  Receipt Date: 20190327
  Transmission Date: 20190418
  Serious: No
  Sender: FDA-Public Use
  Company Number: US-PFIZER INC-2019124750

PATIENT
  Sex: Male

DRUGS (1)
  1. ADVIL LIQUI-GELS [Suspect]
     Active Substance: IBUPROFEN
     Indication: HEADACHE
     Dosage: UNK
     Route: 048

REACTIONS (6)
  - Oral discomfort [Unknown]
  - Abdominal discomfort [Unknown]
  - Hypoaesthesia oral [Unknown]
  - Wrong technique in product usage process [Unknown]
  - Tongue discomfort [Unknown]
  - Dyspepsia [Unknown]
